FAERS Safety Report 26012589 (Version 2)
Quarter: 2025Q4

REPORT INFORMATION
  Report Type: Spontaneous
  Country: EU (occurrence: EU)
  Receive Date: 20251107
  Receipt Date: 20251112
  Transmission Date: 20260117
  Serious: Yes (Congenital Anomaly)
  Sender: AMGEN
  Company Number: EU-EMB-M202407243-1

PATIENT
  Sex: Male
  Weight: 3.32 kg

DRUGS (7)
  1. AIMOVIG [Suspect]
     Active Substance: ERENUMAB-AOOE
     Indication: Foetal exposure during pregnancy
     Dosage: MATERNAL EXPOSURE DURING PREGNANCY: UNK (+ PRECONCEPTIONALLY)
     Route: 064
     Dates: start: 202406, end: 202406
  2. RIZATRIPTAN [Suspect]
     Active Substance: RIZATRIPTAN
     Indication: Foetal exposure during pregnancy
     Dosage: MATERNAL EXPOSURE DURING PREGNANCY: 10 MG, PRN (ACUTE MEDICATION: GW 0 - GW 23 (TAKEN 1-4X PER MONTH
     Route: 064
     Dates: start: 202406, end: 202411
  3. RIZATRIPTAN [Suspect]
     Active Substance: RIZATRIPTAN
     Dosage: MATERNAL EXPOSURE DURING PREGNANCY: 10 MG (ACUTE MEDICATION: GW 0 - GW 23 (TAKEN 1-4X PER MONTH), NO
     Route: 064
     Dates: start: 202502, end: 202503
  4. BOTOX [Concomitant]
     Active Substance: ONABOTULINUMTOXINA
     Indication: Foetal exposure during pregnancy
     Dosage: MATERNAL EXPOSURE DURING PREGNANCY: UNK (+ PRECONCEPTIONALLY (LAST APPLICATION 4 WEEKS BEFORE CONCEP
     Route: 064
     Dates: start: 202411, end: 202411
  5. BOOSTRIX [Concomitant]
     Active Substance: TETANUS TOXOID, REDUCED DIPHTHERIA TOXOID AND ACELLULAR PERTUSSIS VACCINE ADSORBED, TDAP
     Indication: Foetal exposure during pregnancy
     Dosage: MATERNAL EXPOSURE DURING PREGNANCY: UNK
     Route: 064
     Dates: start: 202502, end: 202502
  6. INFLUSPLIT TETRA [Concomitant]
     Active Substance: INFLUENZA VIRUS VACCINE
     Indication: Foetal exposure during pregnancy
     Dosage: UNK
     Route: 064
     Dates: start: 202410, end: 202410
  7. CYTOTEC [Concomitant]
     Active Substance: MISOPROSTOL
     Indication: Foetal exposure during pregnancy
     Dosage: MATERNAL EXPOSURE DURING PREGNANCY: OVERALL 150 MUG: 2X 25 AND 2X 50 MUG
     Route: 064
     Dates: start: 202503, end: 202503

REACTIONS (2)
  - Persistent left superior vena cava [Recovering/Resolving]
  - Foetal exposure during pregnancy [Unknown]

NARRATIVE: CASE EVENT DATE: 20250301
